FAERS Safety Report 12572254 (Version 1)
Quarter: 2016Q3

REPORT INFORMATION
  Report Type: Spontaneous
  Country: US (occurrence: US)
  Receive Date: 20160719
  Receipt Date: 20160719
  Transmission Date: 20161109
  Serious: Yes (Hospitalization)
  Sender: FDA-Public Use
  Company Number: US-VIVA PHARMACEUTICAL INC.-1055271

PATIENT
  Age: 85 Year
  Sex: Female
  Weight: 54.55 kg

DRUGS (3)
  1. FUROSEMIDE. [Concomitant]
     Active Substance: FUROSEMIDE
     Dates: start: 2013
  2. UNSPECIFIED MEDICATIONS BECAUSE ^HEART BEATS TOO HIGH^ [Concomitant]
  3. POTASSIUM CHLORIDE. [Suspect]
     Active Substance: POTASSIUM CHLORIDE
     Indication: DIURETIC THERAPY
     Route: 048

REACTIONS (14)
  - Hypotension [Unknown]
  - Dizziness [Unknown]
  - Dysgeusia [Unknown]
  - Skin ulcer [Unknown]
  - Generalised oedema [Unknown]
  - Cardiac disorder [Unknown]
  - Muscle spasms [Unknown]
  - Nausea [Unknown]
  - Scab [Unknown]
  - Insomnia [Unknown]
  - Pruritus generalised [Unknown]
  - Gait disturbance [Unknown]
  - Erythema [Unknown]
  - Blood potassium decreased [Unknown]
